FAERS Safety Report 18338612 (Version 1)
Quarter: 2020Q4

REPORT INFORMATION
  Report Type: Spontaneous
  Country: GB (occurrence: GB)
  Receive Date: 20201002
  Receipt Date: 20201002
  Transmission Date: 20210113
  Serious: Yes (Other)
  Sender: FDA-Public Use
  Company Number: GB-MYLANLABS-2020M1082713

PATIENT
  Age: 38 Year
  Sex: Male

DRUGS (2)
  1. BISOPROLOL [Suspect]
     Active Substance: BISOPROLOL
     Indication: PRODUCT USED FOR UNKNOWN INDICATION
     Dosage: 1.25 MILLIGRAM, QD
     Dates: start: 20200817
  2. SACUBITRIL [Concomitant]
     Active Substance: SACUBITRIL
     Dosage: USE AS DIRECTED
     Dates: start: 20200817

REACTIONS (1)
  - Pseudofolliculitis [Recovered/Resolved]

NARRATIVE: CASE EVENT DATE: 20200902
